FAERS Safety Report 21728799 (Version 1)
Quarter: 2022Q4

REPORT INFORMATION
  Report Type: Spontaneous
  Country: US (occurrence: US)
  Receive Date: 20221214
  Receipt Date: 20221214
  Transmission Date: 20230113
  Serious: Yes (Other)
  Sender: FDA-Public Use
  Company Number: US-TAKEDA-2022TUS095323

PATIENT
  Age: 66 Year
  Sex: Male

DRUGS (2)
  1. FIRAZYR [Suspect]
     Active Substance: ICATIBANT ACETATE
     Indication: Gastrooesophageal reflux disease
     Dosage: 30 MILLIGRAM, Q6HR
     Route: 058
     Dates: start: 20200805
  2. FIRAZYR [Suspect]
     Active Substance: ICATIBANT ACETATE
     Indication: Gastrooesophageal reflux disease
     Dosage: 30 MILLIGRAM, Q6HR
     Route: 058
     Dates: start: 20200805

REACTIONS (2)
  - Myocardial infarction [Recovered/Resolved]
  - Condition aggravated [Unknown]

NARRATIVE: CASE EVENT DATE: 20221207
